FAERS Safety Report 7554640 (Version 5)
Quarter: 2012Q4

REPORT INFORMATION
  Report Type: 
  Country: CN (occurrence: CN)
  Receive Date: 20100826
  Receipt Date: 20121130
  Transmission Date: 20130627
  Serious: Yes (Hospitalization)
  Sender: FDA-Public Use
  Company Number: PHHY2010CN53781

PATIENT
  Age: 27 Year
  Sex: Male
  Weight: 59 kg

DRUGS (5)
  1. SEBIVO [Suspect]
     Indication: CHRONIC HEPATITIS B
     Dosage: 600 mg, QD
     Route: 048
     Dates: start: 200907, end: 20100628
  2. SEBIVO [Suspect]
     Indication: HEPATITIS B
     Dosage: 1 DF, once
     Route: 048
     Dates: start: 20090813, end: 20100615
  3. INTERFERON [Concomitant]
     Dosage: UNK UKN, UNK
     Dates: start: 200804
  4. ENTECAVIR [Concomitant]
     Dosage: UNK UKN, UNK
     Dates: start: 20100628, end: 20100719
  5. HEPSERA [Concomitant]
     Dosage: UNK
     Dates: start: 20100809

REACTIONS (23)
  - Myositis [Unknown]
  - Muscle injury [Unknown]
  - Muscle atrophy [Unknown]
  - Myalgia [Recovering/Resolving]
  - Hyperplasia [Unknown]
  - Lymphocytic infiltration [Unknown]
  - Muscular weakness [Unknown]
  - Gait disturbance [Recovering/Resolving]
  - Hypotonia [Unknown]
  - Balance disorder [Recovering/Resolving]
  - Fall [Unknown]
  - Blood creatine phosphokinase increased [Unknown]
  - Blood creatine phosphokinase MB increased [Unknown]
  - Lactic acidosis [Unknown]
  - Blood lactic acid increased [Unknown]
  - Vomiting [Unknown]
  - Nausea [Unknown]
  - Chronic hepatitis B [Unknown]
  - Hepatitis B DNA increased [Unknown]
  - Aspartate aminotransferase increased [Unknown]
  - Blood bilirubin increased [Unknown]
  - Neuropathy peripheral [Unknown]
  - Fatigue [Recovering/Resolving]
